FAERS Safety Report 6130640-3 (Version None)
Quarter: 2009Q1

REPORT INFORMATION
  Report Type: 
  Country: None (occurrence: None)
  Receive Date: 20090325
  Receipt Date: 20090316
  Transmission Date: 20090719
  Serious: Yes (Other)
  Sender: FDA-Public Use
  Company Number: AU-AMGEN-US339016

PATIENT
  Sex: Female

DRUGS (3)
  1. ENBREL [Suspect]
     Indication: RHEUMATOID ARTHRITIS
     Dosage: 50MG
     Route: 058
     Dates: start: 20080201, end: 20090305
  2. METHOTREXATE [Concomitant]
     Dosage: 20MG WEEKLY
     Route: 065
  3. ARAVA [Concomitant]
     Dosage: 20MG
     Route: 048

REACTIONS (2)
  - ABORTION SPONTANEOUS [None]
  - DRUG EXPOSURE DURING PREGNANCY [None]
